FAERS Safety Report 17912843 (Version 7)
Quarter: 2024Q1

REPORT INFORMATION
  Report Type: Spontaneous
  Country: US (occurrence: US)
  Receive Date: 20200618
  Receipt Date: 20240209
  Transmission Date: 20240410
  Serious: No
  Sender: FDA-Public Use
  Company Number: US-PFIZER INC-2020228378

PATIENT
  Age: 56 Year
  Sex: Female

DRUGS (4)
  1. IBRANCE [Suspect]
     Active Substance: PALBOCICLIB
     Dosage: 125 MG
     Dates: start: 20200502
  2. IBRANCE [Suspect]
     Active Substance: PALBOCICLIB
     Dosage: 125 MG, CYCLIC (DAILY, 3 WEEKS ON AND 1 WEEK OFF)
     Route: 048
     Dates: start: 20200601
  3. IBRANCE [Suspect]
     Active Substance: PALBOCICLIB
     Dosage: 125 MG, CYCLIC (DAILY, 3 WEEKS ON AND 1 WEEK OFF)
     Route: 048
     Dates: start: 20200617
  4. IBRANCE [Suspect]
     Active Substance: PALBOCICLIB
     Dosage: 100 MG

REACTIONS (10)
  - Fatigue [Not Recovered/Not Resolved]
  - Epistaxis [Unknown]
  - Alopecia [Unknown]
  - Anaemia [Unknown]
  - Decreased appetite [Unknown]
  - Stomatitis [Unknown]
  - Lip dry [Unknown]
  - Dry skin [Unknown]
  - Nail ridging [Unknown]
  - Memory impairment [Unknown]
